FAERS Safety Report 10035687 (Version 2)
Quarter: 2014Q2

REPORT INFORMATION
  Report Type: Spontaneous
  Country: US (occurrence: US)
  Receive Date: 20140325
  Receipt Date: 20140521
  Transmission Date: 20141212
  Serious: Yes (Hospitalization)
  Sender: FDA-Public Use
  Company Number: US-GLAXOSMITHKLINE-A1065409A

PATIENT
  Age: 72 Year
  Sex: Female

DRUGS (3)
  1. RYTHMOL SR [Suspect]
     Indication: ARRHYTHMIA
     Dosage: 225MG TWICE PER DAY
     Route: 048
     Dates: start: 20060119, end: 20140317
  2. METOPROLOL [Concomitant]
  3. SYNTHROID [Concomitant]

REACTIONS (4)
  - Cardiac ablation [Unknown]
  - Cardioversion [Unknown]
  - Echocardiogram [Unknown]
  - Drug ineffective [Unknown]
